FAERS Safety Report 19192496 (Version 5)
Quarter: 2021Q4

REPORT INFORMATION
  Report Type: Spontaneous
  Country: US (occurrence: US)
  Receive Date: 20210428
  Receipt Date: 20211117
  Transmission Date: 20220303
  Serious: No
  Sender: FDA-Public Use
  Company Number: US-PFIZER INC-2021426658

PATIENT
  Age: 61 Year
  Sex: Female
  Weight: 58.97 kg

DRUGS (2)
  1. ESTRING [Suspect]
     Active Substance: ESTRADIOL
     Indication: Urinary incontinence
     Dosage: VAGINAL RING INSERTED INTRAVAGINALLY FOR 90 DAYS OR 3 MONTHS AND THEN REPLACED WITH NEW VAGINAL RING
     Route: 067
     Dates: start: 20210121
  2. ESTRING [Suspect]
     Active Substance: ESTRADIOL
     Dosage: 1 COUNT 2MG STRENGTH VAGINAL RING/ESTRING VAGINAL RING 2 MG
     Route: 067
     Dates: start: 20210414

REACTIONS (3)
  - Pain [Unknown]
  - Drug ineffective for unapproved indication [Not Recovered/Not Resolved]
  - Off label use [Unknown]

NARRATIVE: CASE EVENT DATE: 20210409
